FAERS Safety Report 6393078-X (Version None)
Quarter: 2009Q4

REPORT INFORMATION
  Report Type: 
  Country: None (occurrence: None)
  Receive Date: 20091008
  Receipt Date: 20090930
  Transmission Date: 20100525
  Serious: Yes (Life-Threatening, Hospitalization)
  Sender: FDA-Public Use
  Company Number: JP-ROCHE-656319

PATIENT
  Age: 60 Year
  Sex: Female

DRUGS (2)
  1. TAMIFLU [Suspect]
     Indication: INFLUENZA
     Dosage: DRUG REPORTED AS TAMIFLU CAPSULE
     Route: 048
     Dates: start: 20090907, end: 20090908
  2. RENIVACE [Concomitant]
     Route: 048
     Dates: start: 20090907, end: 20090907

REACTIONS (1)
  - PANCYTOPENIA [None]
